FAERS Safety Report 10142312 (Version 1)
Quarter: 2014Q2

REPORT INFORMATION
  Report Type: Spontaneous
  Country: FR (occurrence: FR)
  Receive Date: 20140429
  Receipt Date: 20140429
  Transmission Date: 20141212
  Serious: Yes (Hospitalization)
  Sender: FDA-Public Use
  Company Number: PHHY2014FR051089

PATIENT
  Age: 76 Year
  Sex: Female

DRUGS (5)
  1. DOXORUBICIN EBEWE [Suspect]
     Indication: B-CELL LYMPHOMA
     Dosage: 83.5 MG, UNK
     Route: 042
     Dates: start: 20071211, end: 20071211
  2. PREDNISOLONE [Suspect]
     Indication: B-CELL LYMPHOMA
     Dosage: 133 MG, UNK
     Route: 048
     Dates: start: 20071211, end: 20071215
  3. ENDOXAN [Suspect]
     Indication: B-CELL LYMPHOMA
     Dosage: 1252 MG, UNK
     Route: 042
     Dates: start: 20071211, end: 20071211
  4. VINCRISTINE TEVA [Suspect]
     Indication: B-CELL LYMPHOMA
     Dosage: 2 MG, UNK
     Route: 042
     Dates: start: 20071211, end: 20071211
  5. MABTHERA [Concomitant]
     Indication: B-CELL LYMPHOMA
     Dosage: 626 MG, UNK
     Route: 065

REACTIONS (5)
  - Malaise [Recovered/Resolved]
  - Loss of consciousness [Recovered/Resolved]
  - Convulsion [Recovered/Resolved]
  - Pyrexia [Recovered/Resolved]
  - Neutropenia [Recovered/Resolved]
